FAERS Safety Report 6927073-6 (Version None)
Quarter: 2010Q3

REPORT INFORMATION
  Report Type: 
  Country: None (occurrence: None)
  Receive Date: 20100816
  Receipt Date: 20100729
  Transmission Date: 20110219
  Serious: No
  Sender: FDA-Public Use
  Company Number: US-ABBOTT-10P-163-0660607-00

PATIENT
  Sex: Male
  Weight: 83.99 kg

DRUGS (2)
  1. SIMCOR [Suspect]
     Indication: LOW DENSITY LIPOPROTEIN DECREASED
     Dosage: 500/20MG AT BEDTIME
     Dates: start: 20100701
  2. SIMCOR [Suspect]
     Indication: BLOOD CHOLESTEROL INCREASED

REACTIONS (2)
  - PRURITUS [None]
  - SKIN BURNING SENSATION [None]
